FAERS Safety Report 20685121 (Version 4)
Quarter: 2022Q2

REPORT INFORMATION
  Report Type: Other
  Country: CA (occurrence: None)
  Receive Date: 20220407
  Receipt Date: 20220421
  Transmission Date: 20220721
  Serious: No
  Sender: FDA-Public Use
  Company Number: CA-ROCHE-3067932

PATIENT
  Age: 56 Year
  Sex: Female

DRUGS (3)
  1. OCREVUS [Suspect]
     Active Substance: OCRELIZUMAB
     Indication: Relapsing-remitting multiple sclerosis
     Dosage: CONCENTRATE FOR INTRAVENOUS INFUSION?300 MG AT DAY 0 AND 14, THEN 600 MG EVERY 6 MONTH
     Route: 042
     Dates: start: 20200806
  2. AZITHROMYCIN [Concomitant]
     Active Substance: AZITHROMYCIN
  3. PREDNISONE [Concomitant]
     Active Substance: PREDNISONE

REACTIONS (5)
  - COVID-19 [Recovered/Resolved]
  - Sinusitis [Recovered/Resolved]
  - Rhinitis [Recovering/Resolving]
  - Ear infection [Recovering/Resolving]
  - Skin ulcer [Recovered/Resolved]

NARRATIVE: CASE EVENT DATE: 20211201
